FAERS Safety Report 7819222-2 (Version None)
Quarter: 2011Q4

REPORT INFORMATION
  Report Type: 
  Country: None (occurrence: None)
  Receive Date: 20111018
  Receipt Date: 20100830
  Transmission Date: 20120403
  Serious: No
  Sender: FDA-Public Use
  Company Number: US-ASTRAZENECA-2010SE40644

PATIENT

DRUGS (1)
  1. MERREM [Suspect]
     Route: 042
     Dates: start: 20100101, end: 20100101

REACTIONS (1)
  - INJECTION SITE EXTRAVASATION [None]
